FAERS Safety Report 9226807 (Version 1)
Quarter: 2013Q2

REPORT INFORMATION
  Report Type: Spontaneous
  Country: US (occurrence: None)
  Receive Date: 20130410
  Receipt Date: 20130410
  Transmission Date: 20140414
  Serious: Yes (Hospitalization)
  Sender: FDA-Public Use
  Company Number: None

PATIENT
  Age: 45 Year
  Sex: Female
  Weight: 82.9 kg

DRUGS (7)
  1. TAXOL [Suspect]
     Indication: CHEMOTHERAPY
     Dosage: 140MG/23.3ML ONCE X 3 DOSES IVPB?RECENT
     Route: 042
  2. NEURONTIN [Concomitant]
  3. NEXIUM [Concomitant]
  4. ANUCORT SUPPOSITORIES [Concomitant]
  5. VIT B6 [Concomitant]
  6. B12 [Concomitant]
  7. COMPAZINE [Concomitant]

REACTIONS (7)
  - Neuropathy peripheral [None]
  - Pain in extremity [None]
  - Onychomadesis [None]
  - Constipation [None]
  - Paronychia [None]
  - Abscess limb [None]
  - Pain [None]
